FAERS Safety Report 9233081 (Version 8)
Quarter: 2014Q2

REPORT INFORMATION
  Report Type: Spontaneous
  Country: GB (occurrence: GB)
  Receive Date: 20130416
  Receipt Date: 20140523
  Transmission Date: 20141212
  Serious: Yes (Other)
  Sender: FDA-Public Use
  Company Number: PHFR2013GB002167

PATIENT
  Age: 45 Year
  Sex: Male

DRUGS (6)
  1. CLOZARIL [Suspect]
     Indication: SCHIZOPHRENIA, PARANOID TYPE
     Dosage: UNK
     Route: 048
     Dates: start: 20041223
  2. CLOZARIL [Suspect]
     Dosage: ON RETITRATION OF DOSE
     Route: 048
  3. CLOZARIL [Suspect]
     Dosage: 400 MG, DAILY
     Route: 048
  4. RABEPRAZOLE [Concomitant]
     Dosage: 20 MG, UNK
     Route: 048
  5. LITHIUM CARBONATE [Concomitant]
     Indication: SCHIZOPHRENIA, PARANOID TYPE
     Dosage: 400 MG, UNK
     Route: 048
  6. ARIPIPRAZOLE [Concomitant]
     Indication: SCHIZOPHRENIA, PARANOID TYPE
     Dosage: 10 MG, UNK
     Route: 048

REACTIONS (5)
  - Hepatitis C [Not Recovered/Not Resolved]
  - Hepatitis B virus test positive [Unknown]
  - White blood cell count decreased [Recovering/Resolving]
  - Neutrophil count decreased [Recovered/Resolved]
  - Platelet count decreased [Not Recovered/Not Resolved]
